FAERS Safety Report 14223175 (Version 11)
Quarter: 2018Q3

REPORT INFORMATION
  Report Type: Report from Study
  Country: US (occurrence: US)
  Receive Date: 20171124
  Receipt Date: 20180928
  Transmission Date: 20181010
  Serious: Yes (Death, Hospitalization)
  Sender: FDA-Public Use
  Company Number: US-ROCHE-2024684

PATIENT
  Age: 51 Year
  Sex: Male
  Weight: 58 kg

DRUGS (79)
  1. LORAZEPAM. [Concomitant]
     Active Substance: LORAZEPAM
     Indication: ANXIETY
     Dosage: 2 MG/ML
     Route: 030
     Dates: start: 20170919, end: 20170919
  2. MEGACE [Concomitant]
     Active Substance: MEGESTROL ACETATE
     Indication: WEIGHT DECREASED
     Route: 048
     Dates: start: 20171101
  3. FOLIC ACID. [Concomitant]
     Active Substance: FOLIC ACID
     Dosage: FOR DIET SUPPLEMENT
     Route: 048
     Dates: start: 20170922
  4. CEFTRIAXONE. [Concomitant]
     Active Substance: CEFTRIAXONE
     Route: 048
     Dates: start: 20171014, end: 20171014
  5. ATEZOLIZUMAB. [Suspect]
     Active Substance: ATEZOLIZUMAB
     Indication: SMALL CELL LUNG CANCER
     Dosage: START TIME OF INFUSION 15:55, END TIME 16:55
     Route: 042
     Dates: start: 20170921
  6. CARBOPLATIN. [Suspect]
     Active Substance: CARBOPLATIN
     Indication: SMALL CELL LUNG CANCER
     Dosage: START TIME OF INFUSION 13:05, END TIME 14:05 (650 MG)?TARGET AUC = 5 MILLIGRAMS PER MILLILITER PER M
     Route: 042
     Dates: start: 20170921
  7. COLACE [Concomitant]
     Active Substance: DOCUSATE SODIUM
     Indication: CONSTIPATION
     Route: 048
     Dates: start: 20170919
  8. LORAZEPAM. [Concomitant]
     Active Substance: LORAZEPAM
     Route: 042
     Dates: start: 20171103, end: 20171103
  9. MORPHINE [Concomitant]
     Active Substance: MORPHINE
     Indication: BACK PAIN
     Route: 042
     Dates: start: 20171011, end: 20171011
  10. MORPHINE [Concomitant]
     Active Substance: MORPHINE
     Route: 042
     Dates: start: 20171012, end: 20171012
  11. MORPHINE [Concomitant]
     Active Substance: MORPHINE
     Route: 042
     Dates: start: 20171029, end: 20171031
  12. MORPHINE [Concomitant]
     Active Substance: MORPHINE
     Route: 042
     Dates: start: 20171014, end: 20171014
  13. ZOLPIDEM [Concomitant]
     Active Substance: ZOLPIDEM\ZOLPIDEM TARTRATE
     Indication: DEPRESSION
     Route: 048
     Dates: start: 20170922
  14. ACETAMINOPHEN. [Concomitant]
     Active Substance: ACETAMINOPHEN
     Route: 048
     Dates: start: 20171025, end: 20171031
  15. AZITHROMYCIN ANHYDROUS. [Concomitant]
     Active Substance: AZITHROMYCIN ANHYDROUS
     Route: 042
     Dates: start: 20171015, end: 20171021
  16. MORPHINE ER [Concomitant]
     Active Substance: MORPHINE
     Route: 048
     Dates: start: 20171015, end: 20171031
  17. MORPHINE ER [Concomitant]
     Active Substance: MORPHINE
     Route: 048
     Dates: start: 20171109, end: 20171109
  18. BLINDED TRILACICLIB [Suspect]
     Active Substance: TRILACICLIB
     Indication: BONE MARROW FAILURE
     Dosage: START TIME OF INFUSION 12:20, END TIME 12:50
     Route: 042
     Dates: start: 20170921
  19. ETOPOSIDE. [Suspect]
     Active Substance: ETOPOSIDE
     Indication: SMALL CELL LUNG CANCER
     Dosage: DOSE: 177MG (100 MG/M2), START TIME OF INFUSION 14:20, END TIME 15:20?100 MG/M2 WILL BE ADMINISTERED
     Route: 042
     Dates: start: 20170921
  20. SENNOSIDES. [Concomitant]
     Active Substance: SENNOSIDES
     Indication: CONSTIPATION
     Route: 048
     Dates: start: 20170919
  21. LORAZEPAM. [Concomitant]
     Active Substance: LORAZEPAM
     Route: 042
     Dates: start: 20171127, end: 20171127
  22. ALOXI [Concomitant]
     Active Substance: PALONOSETRON HYDROCHLORIDE
     Route: 042
     Dates: start: 20171101, end: 20171101
  23. ONDANSETRON [Concomitant]
     Active Substance: ONDANSETRON
     Indication: NAUSEA
     Route: 042
     Dates: start: 20171127, end: 20171127
  24. ROLAPITANT HYDROCHLORIDE [Concomitant]
     Active Substance: ROLAPITANT
     Indication: PREMEDICATION
     Route: 042
     Dates: start: 20171127, end: 20171127
  25. TRAMADOL. [Concomitant]
     Active Substance: TRAMADOL
     Route: 048
     Dates: start: 20171015, end: 20171031
  26. GABAPENTIN. [Concomitant]
     Active Substance: GABAPENTIN
     Route: 048
     Dates: start: 20170906, end: 20171031
  27. CEFTRIAXONE. [Concomitant]
     Active Substance: CEFTRIAXONE
     Route: 048
     Dates: start: 20171015, end: 20171020
  28. DOCUSATE SODIUM. [Concomitant]
     Active Substance: DOCUSATE SODIUM
     Route: 048
     Dates: start: 20170919
  29. MORPHINE ER [Concomitant]
     Active Substance: MORPHINE
     Route: 048
     Dates: start: 20171104, end: 20171107
  30. MORPHINE ER [Concomitant]
     Active Substance: MORPHINE
     Route: 048
     Dates: start: 20171109, end: 20171127
  31. BLINDED TRILACICLIB [Suspect]
     Active Substance: TRILACICLIB
     Dosage: START TIME OF INFUSION 15:45, END TIME 16:15
     Route: 042
     Dates: start: 20171103
  32. CARBOPLATIN. [Suspect]
     Active Substance: CARBOPLATIN
     Dosage: START TIME OF INFUSION 14:30, END TIME 15:30
     Route: 042
     Dates: start: 20171101
  33. ETOPOSIDE. [Suspect]
     Active Substance: ETOPOSIDE
     Dosage: DOSE: 168, START TIME OF INFUSION 16:25, END TIME 17:30
     Route: 042
     Dates: start: 20171103
  34. GABAPENTIN. [Concomitant]
     Active Substance: GABAPENTIN
     Indication: PAIN
     Route: 048
     Dates: start: 20171104, end: 20171107
  35. LORAZEPAM. [Concomitant]
     Active Substance: LORAZEPAM
     Route: 042
     Dates: start: 20171101, end: 20171101
  36. ALLOPURINOL. [Concomitant]
     Active Substance: ALLOPURINOL
     Indication: PROPHYLAXIS
     Route: 048
     Dates: start: 20170920
  37. ONDANSETRON [Concomitant]
     Active Substance: ONDANSETRON
     Dosage: NAUSEA PREVENTION
     Route: 042
     Dates: start: 20171029, end: 20171029
  38. TRAMADOL. [Concomitant]
     Active Substance: TRAMADOL
     Indication: PAIN
     Route: 048
     Dates: start: 20170924
  39. DOCUSATE SODIUM. [Concomitant]
     Active Substance: DOCUSATE SODIUM
     Indication: CONSTIPATION PROPHYLAXIS
     Route: 048
     Dates: start: 20171015, end: 20171031
  40. MORPHINE [Concomitant]
     Active Substance: MORPHINE
     Dosage: AS REQUIRED
     Route: 042
     Dates: start: 20171109, end: 20171125
  41. CLARITIN [Concomitant]
     Active Substance: LORATADINE
     Indication: SEASONAL ALLERGY
     Route: 048
     Dates: start: 20170530
  42. ALOXI [Concomitant]
     Active Substance: PALONOSETRON HYDROCHLORIDE
     Route: 042
     Dates: start: 20171011, end: 20171011
  43. ONDANSETRON [Concomitant]
     Active Substance: ONDANSETRON
     Dosage: GIVEN WITH MORPHINE
     Route: 042
     Dates: start: 20171014, end: 20171014
  44. ONDANSETRON [Concomitant]
     Active Substance: ONDANSETRON
     Route: 042
     Dates: start: 20171104, end: 20171107
  45. ZOFRAN [Concomitant]
     Active Substance: ONDANSETRON HYDROCHLORIDE
     Indication: NAUSEA
     Dosage: EVERY HRS INCREMENT
     Route: 048
     Dates: start: 20171101
  46. LEVALBUTEROL. [Concomitant]
     Active Substance: LEVALBUTEROL
     Indication: DYSPNOEA
     Route: 050
     Dates: start: 20170922
  47. DEXAMETHASONE. [Concomitant]
     Active Substance: DEXAMETHASONE
     Route: 042
     Dates: start: 20170923, end: 20170923
  48. SIMETHICONE (DIMETHICONE) [Concomitant]
     Active Substance: DIMETHICONE
     Dosage: GASTRIC DISTRESS
     Route: 048
     Dates: start: 20170922
  49. GABAPENTIN. [Concomitant]
     Active Substance: GABAPENTIN
     Route: 048
     Dates: start: 20171104, end: 20171107
  50. ALBUTEROL/IPRATROPIUM [Concomitant]
     Active Substance: ALBUTEROL\IPRATROPIUM
     Route: 055
     Dates: start: 20171015, end: 20171031
  51. ATEZOLIZUMAB. [Suspect]
     Active Substance: ATEZOLIZUMAB
     Dosage: START TIME OF INFUSION 17:48, END TIME 18:17
     Route: 042
     Dates: start: 20171011
  52. MIRALAX [Concomitant]
     Active Substance: POLYETHYLENE GLYCOL 3350
     Indication: CONSTIPATION
     Route: 048
     Dates: start: 20170919
  53. MORPHINE [Concomitant]
     Active Substance: MORPHINE
     Route: 042
     Dates: start: 20171101, end: 20171101
  54. DEXAMETHASONE. [Concomitant]
     Active Substance: DEXAMETHASONE
     Indication: PREMEDICATION
     Route: 042
     Dates: start: 20170922, end: 20170922
  55. IBUPROFEN. [Concomitant]
     Active Substance: IBUPROFEN
     Indication: PAIN
     Route: 048
     Dates: start: 20170922
  56. ATEZOLIZUMAB. [Suspect]
     Active Substance: ATEZOLIZUMAB
     Route: 042
     Dates: start: 20171101
  57. GABAPENTIN. [Concomitant]
     Active Substance: GABAPENTIN
     Indication: BACK INJURY
     Route: 048
     Dates: start: 20170906, end: 20171031
  58. LORAZEPAM. [Concomitant]
     Active Substance: LORAZEPAM
     Route: 042
     Dates: start: 20171021, end: 20171021
  59. MORPHINE [Concomitant]
     Active Substance: MORPHINE
     Route: 042
     Dates: start: 20171127, end: 20171127
  60. MORPHINE [Concomitant]
     Active Substance: MORPHINE
     Route: 042
     Dates: start: 20171017, end: 20171029
  61. MORPHINE [Concomitant]
     Active Substance: MORPHINE
     Route: 042
     Dates: start: 20171109, end: 20171125
  62. ALOXI [Concomitant]
     Active Substance: PALONOSETRON HYDROCHLORIDE
     Indication: PREMEDICATION
     Route: 042
     Dates: start: 20170921, end: 20170921
  63. MILK OF MAGNESIA [Concomitant]
     Active Substance: MAGNESIUM HYDROXIDE
     Indication: CONSTIPATION
     Route: 048
     Dates: start: 20170922
  64. MIRTAZAPINE. [Concomitant]
     Active Substance: MIRTAZAPINE
     Indication: DEPRESSION
     Route: 048
     Dates: start: 20170922
  65. ATORVASTATIN [Concomitant]
     Active Substance: ATORVASTATIN
     Route: 048
     Dates: start: 20170922
  66. DOXYCYCLINE. [Concomitant]
     Active Substance: DOXYCYCLINE
     Indication: INFECTION PROPHYLAXIS
     Route: 048
     Dates: start: 20171015, end: 20171020
  67. BLINDED TRILACICLIB [Suspect]
     Active Substance: TRILACICLIB
     Dosage: START TIME OF INFUSION 16:30, END TIME 17:00
     Route: 042
     Dates: start: 20171013
  68. CARBOPLATIN. [Suspect]
     Active Substance: CARBOPLATIN
     Dosage: START TIME OF INFUSION 15:08, END TIME 16:08
     Route: 042
     Dates: start: 20171011
  69. ETOPOSIDE. [Suspect]
     Active Substance: ETOPOSIDE
     Dosage: DOSE: 168, START TIME OF INFUSION 17:10, END TIME 18:10
     Route: 042
     Dates: start: 20171013
  70. ERGOCALCIFEROL. [Concomitant]
     Active Substance: ERGOCALCIFEROL
     Indication: VITAMIN D DEFICIENCY
     Route: 048
     Dates: start: 20170530
  71. NYSTATIN. [Concomitant]
     Active Substance: NYSTATIN
     Indication: COUGH
     Route: 048
     Dates: start: 20170620
  72. LORAZEPAM. [Concomitant]
     Active Substance: LORAZEPAM
     Route: 030
     Dates: start: 20171101, end: 20171101
  73. LORAZEPAM. [Concomitant]
     Active Substance: LORAZEPAM
     Route: 042
     Dates: start: 20171027, end: 20171027
  74. MORPHINE [Concomitant]
     Active Substance: MORPHINE
     Route: 042
     Dates: start: 20171102, end: 20171102
  75. MORPHINE [Concomitant]
     Active Substance: MORPHINE
     Route: 042
     Dates: start: 20171103, end: 20171103
  76. MS CONTIN [Concomitant]
     Active Substance: MORPHINE SULFATE
     Route: 048
     Dates: start: 20171012
  77. IBUPROFEN. [Concomitant]
     Active Substance: IBUPROFEN
     Indication: BACK INJURY
     Route: 048
     Dates: start: 20170821, end: 20170922
  78. FLEET ENEMA [Concomitant]
     Active Substance: SODIUM PHOSPHATE, DIBASIC\SODIUM PHOSPHATE, MONOBASIC
     Route: 054
     Dates: start: 20171021, end: 20171021
  79. SENNA [Concomitant]
     Active Substance: SENNA LEAF\SENNOSIDES\SENNOSIDES A AND B
     Dosage: 1 TABLET
     Route: 048
     Dates: start: 20171015, end: 20171031

REACTIONS (2)
  - Back pain [Recovered/Resolved]
  - Thrombosis [Recovered/Resolved]

NARRATIVE: CASE EVENT DATE: 20171108
